FAERS Safety Report 6411943-1 (Version None)
Quarter: 2009Q4

REPORT INFORMATION
  Report Type: 
  Country: None (occurrence: None)
  Receive Date: 20091023
  Receipt Date: 20091016
  Transmission Date: 20100525
  Serious: Yes (Hospitalization)
  Sender: FDA-Public Use
  Company Number: JP-JNJFOC-20091001445

PATIENT
  Age: 84 Year
  Sex: Female

DRUGS (7)
  1. DUROTEP MT PATCH [Suspect]
     Indication: DRUG USE FOR UNKNOWN INDICATION
     Route: 062
  2. ACINON [Concomitant]
     Route: 048
  3. BERIZYM [Concomitant]
     Route: 048
  4. AMLODIPINE [Concomitant]
     Route: 048
  5. NAIXAN [Concomitant]
     Route: 048
  6. MAGNESIUM OXIDE [Concomitant]
     Route: 048
  7. ALENDRONATE SODIUM [Concomitant]
     Route: 048

REACTIONS (2)
  - HOSPITALISATION [None]
  - NAUSEA [None]
